FAERS Safety Report 4692861-6 (Version None)
Quarter: 2005Q2

REPORT INFORMATION
  Report Type: 
  Country: None (occurrence: None)
  Receive Date: 20050617
  Receipt Date: 20050607
  Transmission Date: 20051028
  Serious: Yes (Hospitalization)
  Sender: FDA-Public Use
  Company Number: FR-BRISTOL-MYERS SQUIBB COMPANY-12997185

PATIENT
  Age: 79 Year
  Sex: Female

DRUGS (15)
  1. ELISOR TABS [Suspect]
     Route: 048
     Dates: end: 20050329
  2. CORTANCYL [Suspect]
     Dates: end: 20050330
  3. SULFASALAZINE [Suspect]
     Indication: RHEUMATOID ARTHRITIS
     Dates: end: 20050329
  4. SPECIAFOLDINE [Suspect]
     Dates: end: 20050329
  5. PLAVIX [Concomitant]
     Dates: start: 20040130, end: 20050329
  6. KARDEGIC [Concomitant]
  7. DOLIPRANE [Concomitant]
  8. MOVICOL [Concomitant]
  9. CALCIUM GLUCONATE [Concomitant]
  10. DIFFU-K [Concomitant]
  11. OMEPRAZOLE [Concomitant]
  12. TRIATEC [Concomitant]
  13. LASILIX [Concomitant]
  14. LOXEN LP [Concomitant]
  15. CATACOL [Concomitant]
     Route: 047

REACTIONS (11)
  - ACCIDENT [None]
  - ALANINE AMINOTRANSFERASE INCREASED [None]
  - ASPARTATE AMINOTRANSFERASE INCREASED [None]
  - BLOOD ALKALINE PHOSPHATASE INCREASED [None]
  - CHOLESTASIS [None]
  - CYTOLYTIC HEPATITIS [None]
  - EPSTEIN-BARR VIRUS ANTIBODY POSITIVE [None]
  - FALL [None]
  - GAMMA-GLUTAMYLTRANSFERASE INCREASED [None]
  - HEAD INJURY [None]
  - HERPES SIMPLEX SEROLOGY POSITIVE [None]
